FAERS Safety Report 22769409 (Version 2)
Quarter: 2024Q1

REPORT INFORMATION
  Report Type: Spontaneous
  Country: US (occurrence: US)
  Receive Date: 20230731
  Receipt Date: 20240117
  Transmission Date: 20240409
  Serious: Yes (Hospitalization)
  Sender: FDA-Public Use
  Company Number: US-009507513-2307USA012029

PATIENT
  Age: 81 Year
  Sex: Female

DRUGS (15)
  1. KEYTRUDA [Suspect]
     Active Substance: PEMBROLIZUMAB
     Indication: Bladder cancer
     Dosage: 200 MILLIGRAM, Q3W
     Route: 042
     Dates: start: 20230504
  2. KEYTRUDA [Suspect]
     Active Substance: PEMBROLIZUMAB
     Indication: Metastases to liver
     Dosage: 200 MILLIGRAM, Q3W
     Route: 042
     Dates: start: 20230525
  3. KEYTRUDA [Suspect]
     Active Substance: PEMBROLIZUMAB
     Dosage: 200 MILLIGRAM, Q3W
     Route: 042
     Dates: start: 20230615
  4. PADCEV [Suspect]
     Active Substance: ENFORTUMAB VEDOTIN-EJFV
     Indication: Bladder cancer
     Dosage: 80 MILLIGRAM, DAY 1, 8, 21 DAY CYCLE; INTRAVENOUSLY VIA PORT-A-CATH
     Route: 042
     Dates: start: 20230504
  5. PADCEV [Suspect]
     Active Substance: ENFORTUMAB VEDOTIN-EJFV
     Indication: Metastases to liver
     Dosage: 80 MILLIGRAM, FIRST CYCLE VIA HER PORT-A-CATH WITHOUT PEMBROLIZUMAB (KEYTRUDA)
     Route: 042
     Dates: start: 20230511
  6. PADCEV [Suspect]
     Active Substance: ENFORTUMAB VEDOTIN-EJFV
     Dosage: 80 MILLIGRAM, SECOND CYCLE VIA HER PORT-A-CATH FOLLOWED BY 200MG PEMBROLIZUMAB (KEYTRUDA)
     Route: 042
     Dates: start: 20230525
  7. PADCEV [Suspect]
     Active Substance: ENFORTUMAB VEDOTIN-EJFV
     Dosage: 70 MILLIGRAM, SECOND CYCLE VIA HER PORT-A-CATH WITHOUT PEMBROLIZUMAB (KEYTRUDA)
     Route: 042
     Dates: start: 20230601
  8. PADCEV [Suspect]
     Active Substance: ENFORTUMAB VEDOTIN-EJFV
     Dosage: 70 MILLIGRAM, FIRST DOSE OF ROUND THREE, VIA HER PORT-A-CATH FOLLOWED BY PEMBROLIZUMAB (KEYTRUDA)
     Route: 042
     Dates: start: 20230615
  9. PADCEV [Suspect]
     Active Substance: ENFORTUMAB VEDOTIN-EJFV
     Dosage: 70 MILLIGRAM, SECOND DOSE OF ROUND THREE, VIA HER PORT-A-CATH WITHOUT PEMBROLIZUMAB (KEYTRUDA)
     Route: 042
     Dates: start: 20230622
  10. CARVEDILOL [Concomitant]
     Active Substance: CARVEDILOL
     Dosage: UNK
  11. EZETIMIBE [Concomitant]
     Active Substance: EZETIMIBE
     Dosage: UNK
  12. HYDROCHLOROTHIAZIDE [Concomitant]
     Active Substance: HYDROCHLOROTHIAZIDE
     Dosage: UNK
  13. LEVOTHYROXINE [Concomitant]
     Active Substance: LEVOTHYROXINE
     Dosage: UNK
  14. OMEPRAZOLE [Concomitant]
     Active Substance: OMEPRAZOLE
     Dosage: UNK
  15. LIVALO [Concomitant]
     Active Substance: PITAVASTATIN CALCIUM
     Dosage: UNK

REACTIONS (15)
  - Blood magnesium decreased [Unknown]
  - Blood potassium decreased [Recovered/Resolved]
  - Dyspnoea exertional [Recovering/Resolving]
  - Gastrooesophageal reflux disease [Recovering/Resolving]
  - Presyncope [Recovering/Resolving]
  - Ageusia [Recovered/Resolved]
  - Taste disorder [Recovered/Resolved]
  - Decreased appetite [Recovered/Resolved]
  - Dyspepsia [Recovering/Resolving]
  - Pain in extremity [Not Recovered/Not Resolved]
  - Cough [Recovering/Resolving]
  - Alopecia [Not Recovered/Not Resolved]
  - Rash [Not Recovered/Not Resolved]
  - Fatigue [Not Recovered/Not Resolved]
  - Off label use [Unknown]

NARRATIVE: CASE EVENT DATE: 20230501
